FAERS Safety Report 6838955-8 (Version None)
Quarter: 2010Q3

REPORT INFORMATION
  Report Type: 
  Country: None (occurrence: None)
  Receive Date: 20100713
  Receipt Date: 20071107
  Transmission Date: 20110219
  Serious: Yes (Other)
  Sender: FDA-Public Use
  Company Number: US-PFIZER INC-2007047830

PATIENT
  Sex: Male
  Weight: 109.09 kg

DRUGS (2)
  1. CHANTIX [Suspect]
     Indication: SMOKING CESSATION THERAPY
     Dates: start: 20070530, end: 20070608
  2. PROPRANOLOL [Concomitant]
     Indication: HYPERTENSION

REACTIONS (3)
  - HYPOXIA [None]
  - MENTAL DISORDER [None]
  - PULMONARY EMBOLISM [None]
